FAERS Safety Report 5952602-9 (Version None)
Quarter: 2008Q4

REPORT INFORMATION
  Report Type: 
  Country: None (occurrence: None)
  Receive Date: 20081027
  Receipt Date: 20080726
  Transmission Date: 20090506
  Serious: Yes (Other)
  Sender: FDA-Public Use
  Company Number: US024207

PATIENT
  Age: 20 Year
  Sex: Female

DRUGS (2)
  1. AMRIX [Suspect]
     Indication: MUSCLE SPASMS
     Dosage: 15 MG QD ORAL
     Route: 048
     Dates: start: 20080501, end: 20080101
  2. TRAMADOL HCL [Suspect]
     Dosage: 1 TO 2 DAILY

REACTIONS (1)
  - CONVULSION [None]
